FAERS Safety Report 17288827 (Version 1)
Quarter: 2020Q1

REPORT INFORMATION
  Report Type: Spontaneous
  Country: US (occurrence: US)
  Receive Date: 20200120
  Receipt Date: 20200120
  Transmission Date: 20200409
  Serious: Yes (Other)
  Sender: FDA-Public Use
  Company Number: US-INSMED, INC.-US-INS-19-03492

PATIENT
  Sex: Male

DRUGS (2)
  1. ARIKAYCE [Suspect]
     Active Substance: AMIKACIN
     Indication: MYCOBACTERIAL INFECTION
     Route: 055
     Dates: start: 201810, end: 20190922
  2. LAMIRA NEBULIZER SYSTEM [Suspect]
     Active Substance: DEVICE

REACTIONS (4)
  - Device leakage [Unknown]
  - Product administered to patient of inappropriate age [Unknown]
  - Off label use [Unknown]
  - Deafness [Unknown]
